FAERS Safety Report 4382320-2 (Version None)
Quarter: 2004Q2

REPORT INFORMATION
  Report Type: 
  Country: None (occurrence: None)
  Receive Date: 20040621
  Receipt Date: 20040621
  Transmission Date: 20050107
  Serious: Yes (Disabling)
  Sender: FDA-Public Use
  Company Number: None

PATIENT
  Age: 36 Year
  Sex: Female
  Weight: 114.3065 kg

DRUGS (2)
  1. GENTAMICIN [Suspect]
     Indication: PELVIC INFECTION
     Dosage: Q24H INTRAVENOUS
     Route: 042
     Dates: start: 20040212, end: 20040309
  2. GENTAMICIN [Suspect]
     Indication: THROMBOSIS
     Dosage: Q24H INTRAVENOUS
     Route: 042
     Dates: start: 20040212, end: 20040309

REACTIONS (3)
  - OSCILLOPSIA [None]
  - VESTIBULAR DISORDER [None]
  - VISUAL ACUITY REDUCED [None]
